FAERS Safety Report 8451047-X (Version None)
Quarter: 2012Q2

REPORT INFORMATION
  Report Type: 
  Country: None (occurrence: None)
  Receive Date: 20120620
  Receipt Date: 20120607
  Transmission Date: 20120825
  Serious: Yes (Hospitalization)
  Sender: FDA-Public Use
  Company Number: JP-ROCHE-1075978

PATIENT
  Age: 55 Year
  Sex: Female

DRUGS (22)
  1. MABTHERA [Suspect]
     Route: 042
     Dates: start: 20091124
  2. DEXAMETHASONE [Suspect]
     Indication: B-CELL LYMPHOMA
     Route: 065
  3. IBRITUMOMAB TIUXETAN AND YTTRIUM-90 [Suspect]
     Indication: B-CELL LYMPHOMA
     Dosage: DOSE: 14.8 MBQ/KG
     Route: 042
     Dates: start: 20091124
  4. LEVOFLOXACIN [Concomitant]
  5. BIO-THREE [Concomitant]
  6. PL GRANULES [Concomitant]
     Route: 048
  7. DEQUALINIUM CHLORIDE [Concomitant]
     Route: 048
  8. PIRARUBICIN [Suspect]
     Indication: B-CELL LYMPHOMA
     Route: 065
  9. PREDNISOLONE [Suspect]
     Indication: B-CELL LYMPHOMA
     Route: 065
  10. FLUDARABINE PHOSPHATE [Suspect]
     Indication: B-CELL LYMPHOMA
     Route: 065
  11. ISODINE [Concomitant]
     Indication: OROPHARYNGEAL PAIN
  12. AMLODIPINE [Concomitant]
     Route: 048
  13. MITOXANTRONE HYDROCHLORIDE [Suspect]
     Indication: B-CELL LYMPHOMA
     Route: 065
  14. PYRINAZIN [Concomitant]
     Indication: PREMEDICATION
     Route: 048
     Dates: start: 20091117
  15. MABTHERA [Suspect]
     Indication: B-CELL LYMPHOMA
     Route: 042
     Dates: start: 20091117
  16. IBRITUMOMAB TIUXETAN AND INDIUM-111 [Suspect]
     Indication: B-CELL LYMPHOMA
     Dosage: DOSE: 130 MBQ
     Route: 042
     Dates: start: 20091117
  17. RESTAMIN KOWA [Concomitant]
     Route: 048
     Dates: start: 20091124
  18. CYCLOPHOSPHAMIDE [Suspect]
     Indication: B-CELL LYMPHOMA
     Route: 065
  19. VINCRISTINE SULFATE [Suspect]
     Indication: B-CELL LYMPHOMA
     Route: 065
  20. PYRINAZIN [Concomitant]
     Route: 048
     Dates: start: 20091124
  21. PURSENNID [Concomitant]
     Indication: CONSTIPATION
  22. RESTAMIN KOWA [Concomitant]
     Indication: PREMEDICATION
     Route: 048
     Dates: start: 20091117

REACTIONS (4)
  - NEUTROPHIL COUNT DECREASED [None]
  - PLATELET COUNT DECREASED [None]
  - PYREXIA [None]
  - CERVIX CARCINOMA [None]
